FAERS Safety Report 18120800 (Version 2)
Quarter: 2020Q3

REPORT INFORMATION
  Report Type: Spontaneous
  Country: PR (occurrence: PR)
  Receive Date: 20200806
  Receipt Date: 20200922
  Transmission Date: 20201103
  Serious: No
  Sender: FDA-Public Use
  Company Number: PR-PFIZER INC-2020299342

PATIENT
  Age: 58 Year
  Sex: Female

DRUGS (1)
  1. LYRICA [Suspect]
     Active Substance: PREGABALIN
     Dosage: 50MG,TAKE 1 CAPSULE EVERY MORNING/200MG, TAKE 1 CAPSULE EVERY NIGHT AT BEDTIME
     Route: 048

REACTIONS (1)
  - Pain [Not Recovered/Not Resolved]
